FAERS Safety Report 16338764 (Version 1)
Quarter: 2019Q2

REPORT INFORMATION
  Report Type: Spontaneous
  Country: BR (occurrence: BR)
  Receive Date: 20190521
  Receipt Date: 20190521
  Transmission Date: 20190711
  Serious: Yes (Other)
  Sender: FDA-Public Use
  Company Number: BR-CELGENEUS-BRA-20190505847

PATIENT
  Sex: Female
  Weight: 65 kg

DRUGS (1)
  1. VIDAZA [Suspect]
     Active Substance: AZACITIDINE
     Indication: MYELODYSPLASTIC SYNDROME
     Dosage: 127 MILLIGRAM
     Route: 058
     Dates: start: 20190304

REACTIONS (3)
  - Gastrointestinal disorder [Recovered/Resolved]
  - Decreased appetite [Recovered/Resolved]
  - Constipation [Unknown]

NARRATIVE: CASE EVENT DATE: 2019
